FAERS Safety Report 23784336 (Version 1)
Quarter: 2024Q2

REPORT INFORMATION
  Report Type: Spontaneous
  Country: CA (occurrence: CA)
  Receive Date: 20240425
  Receipt Date: 20240425
  Transmission Date: 20240716
  Serious: Yes (Hospitalization, Other)
  Sender: FDA-Public Use
  Company Number: CA-002147023-PHHY2019CA134495

PATIENT
  Age: 48 Year
  Sex: Female
  Weight: 106 kg

DRUGS (147)
  1. ACETAMINOPHEN [Suspect]
     Active Substance: ACETAMINOPHEN
     Indication: Tardive dyskinesia
     Dosage: 30 MG, QD
     Route: 065
  2. ACETAMINOPHEN AND CODEINE [Suspect]
     Active Substance: ACETAMINOPHEN\CODEINE PHOSPHATE
     Dosage: 30 MG, QD
     Route: 065
  3. ACETAMINOPHEN AND CODEINE [Suspect]
     Active Substance: ACETAMINOPHEN\CODEINE PHOSPHATE
     Dosage: 30 MG, QD
     Route: 065
  4. ACETAMINOPHEN AND CODEINE [Suspect]
     Active Substance: ACETAMINOPHEN\CODEINE PHOSPHATE
     Dosage: 30 MG, QD
     Route: 065
  5. ACETAMINOPHEN AND CODEINE [Suspect]
     Active Substance: ACETAMINOPHEN\CODEINE PHOSPHATE
     Indication: Tardive dyskinesia
     Dosage: 30 MG, QD (FORMULATION: ELIXIR)
     Route: 065
  6. ACETAMINOPHEN AND CODEINE [Suspect]
     Active Substance: ACETAMINOPHEN\CODEINE PHOSPHATE
     Indication: Tardive dyskinesia
     Dosage: 30 MG, Q4H
     Route: 065
  7. ACETAMINOPHEN AND CODEINE [Suspect]
     Active Substance: ACETAMINOPHEN\CODEINE PHOSPHATE
     Dosage: 30 MG, Q4H
     Route: 065
  8. ACETAMINOPHEN AND CODEINE [Suspect]
     Active Substance: ACETAMINOPHEN\CODEINE PHOSPHATE
     Dosage: 30 MG, Q4H
     Route: 065
  9. ACETAMINOPHEN AND CODEINE [Suspect]
     Active Substance: ACETAMINOPHEN\CODEINE PHOSPHATE
     Dosage: UNK
     Route: 065
  10. APREPITANT [Suspect]
     Active Substance: APREPITANT
     Dosage: 125 MG, QD (1 EVERY 1 DAYS)
     Route: 048
  11. APREPITANT [Suspect]
     Active Substance: APREPITANT
     Dosage: 125 MG, QD (1 EVERY 1 DAYS)
     Route: 048
  12. APREPITANT [Suspect]
     Active Substance: APREPITANT
     Indication: Supportive care
     Dosage: 125 MG
     Route: 048
  13. APREPITANT [Suspect]
     Active Substance: APREPITANT
     Dosage: 125 MG
     Route: 048
  14. APREPITANT [Suspect]
     Active Substance: APREPITANT
     Dosage: 80 MG, QD (1 EVERY 1 DAYS)
     Route: 048
  15. APREPITANT [Suspect]
     Active Substance: APREPITANT
     Dosage: 80 MG, QD (1 EVERY 1 DAYS)
     Route: 048
  16. APREPITANT [Suspect]
     Active Substance: APREPITANT
     Dosage: 80 MG, QD (1 EVERY 1 DAYS)
     Route: 048
  17. BETAMETHASONE [Suspect]
     Active Substance: BETAMETHASONE\BETAMETHASONE DIPROPIONATE
     Dosage: UNK, Q12H (1 EVERY 12 HOURS)
     Route: 048
  18. BETAMETHASONE [Suspect]
     Active Substance: BETAMETHASONE\BETAMETHASONE DIPROPIONATE
     Indication: Tardive dyskinesia
     Dosage: UNK UNK, BID (2 EVERY 1 DAYS)
     Route: 065
  19. BETAMETHASONE [Suspect]
     Active Substance: BETAMETHASONE\BETAMETHASONE DIPROPIONATE
     Dosage: UNK UNK, BID (2 EVERY 1 DAYS)
     Route: 065
  20. BETAMETHASONE [Suspect]
     Active Substance: BETAMETHASONE\BETAMETHASONE DIPROPIONATE
     Dosage: UNK
     Route: 048
  21. DOXORUBICIN [Suspect]
     Active Substance: DOXORUBICIN
     Dosage: 136 MG, Q2W (1 EVERY 2 WEEKS)
     Route: 042
  22. DOXORUBICIN [Suspect]
     Active Substance: DOXORUBICIN
     Dosage: 136 MG, Q2W (1 EVERY 2 WEEKS)
     Route: 042
  23. DOXORUBICIN [Suspect]
     Active Substance: DOXORUBICIN
     Dosage: 136 MG, Q2W (1 EVERY 2 WEEKS)
     Route: 042
  24. DOXORUBICIN [Suspect]
     Active Substance: DOXORUBICIN
     Indication: Breast cancer
     Dosage: 136 MG, Q4H
     Route: 042
  25. DOXORUBICIN [Suspect]
     Active Substance: DOXORUBICIN
     Dosage: 136 MG
     Route: 042
  26. DOXORUBICIN [Suspect]
     Active Substance: DOXORUBICIN
     Dosage: UNK
     Route: 042
  27. DEXAMETHASONE [Suspect]
     Active Substance: DEXAMETHASONE
     Indication: Supportive care
     Dosage: 20 MG, QD (1 EVERY 1 DAYS)
     Route: 048
  28. DEXAMETHASONE [Suspect]
     Active Substance: DEXAMETHASONE
     Dosage: 20 MG, QD (1 EVERY 1 DAYS)
     Route: 048
  29. DEXAMETHASONE [Suspect]
     Active Substance: DEXAMETHASONE
     Dosage: 20 MG, QD (1 EVERY 1 DAYS)
     Route: 048
  30. DEXAMETHASONE [Suspect]
     Active Substance: DEXAMETHASONE
     Dosage: 20 MG, QD (1 EVERY 1 DAYS)
     Route: 048
  31. DEXAMETHASONE [Suspect]
     Active Substance: DEXAMETHASONE
     Dosage: 20 MG, QD (1 EVERY 1 DAYS)
     Route: 048
  32. DEXAMETHASONE [Suspect]
     Active Substance: DEXAMETHASONE
     Dosage: 20 MG, QD (1 EVERY 1 DAYS)
     Route: 048
  33. DEXAMETHASONE [Suspect]
     Active Substance: DEXAMETHASONE
     Dosage: UNK
     Route: 048
  34. EMEND [Suspect]
     Active Substance: APREPITANT
     Dosage: 125 MG, QD
     Route: 048
  35. EMEND [Suspect]
     Active Substance: APREPITANT
     Dosage: 125 MG, QD
     Route: 048
  36. EMEND [Suspect]
     Active Substance: APREPITANT
     Dosage: 125 MG, QD
     Route: 048
  37. EMEND [Suspect]
     Active Substance: APREPITANT
     Dosage: 125 MG, QD
     Route: 048
  38. EMEND [Suspect]
     Active Substance: APREPITANT
     Dosage: 125 MG, QD
     Route: 048
  39. EMEND [Suspect]
     Active Substance: APREPITANT
     Dosage: 125 MG, QD
     Route: 048
  40. EMEND [Suspect]
     Active Substance: APREPITANT
     Dosage: 125 MG
     Route: 048
  41. EMEND [Suspect]
     Active Substance: APREPITANT
     Dosage: 125 MG
     Route: 048
  42. EMEND [Suspect]
     Active Substance: APREPITANT
     Dosage: 80 MG, QD
     Route: 048
  43. EMEND [Suspect]
     Active Substance: APREPITANT
     Indication: Supportive care
     Dosage: 80 MG, QD (1 EVERY 1 DAYS)
     Route: 048
  44. EMEND [Suspect]
     Active Substance: APREPITANT
     Dosage: 80 MG, QD (1 EVERY 1 DAYS)
     Route: 048
  45. EMEND [Suspect]
     Active Substance: APREPITANT
     Dosage: 80 MG, QD (1 EVERY 1 DAYS)
     Route: 048
  46. EMEND [Suspect]
     Active Substance: APREPITANT
     Dosage: 80 MG, QD (1 EVERY 1 DAYS)
     Route: 048
  47. EMEND [Suspect]
     Active Substance: APREPITANT
     Dosage: 80 MG, QD (1 EVERY 1 DAYS)
     Route: 048
  48. EMEND [Suspect]
     Active Substance: APREPITANT
     Dosage: 80 MG, QD (1 EVERY 1 DAYS)
     Route: 048
  49. EMEND [Suspect]
     Active Substance: APREPITANT
     Dosage: 80 MG, QD (1 EVERY 1 DAYS)
     Route: 048
  50. EMEND [Suspect]
     Active Substance: APREPITANT
     Dosage: 80 MG, QD (1 EVERY 1 DAYS)
     Route: 048
  51. EMEND [Suspect]
     Active Substance: APREPITANT
     Dosage: 80 MG, QD (1 EVERY 1 DAYS)
     Route: 048
  52. EMEND [Suspect]
     Active Substance: APREPITANT
     Dosage: UNK
     Route: 048
  53. EMEND [Suspect]
     Active Substance: APREPITANT
     Dosage: UNK
     Route: 048
  54. EMEND [Suspect]
     Active Substance: APREPITANT
     Dosage: UNK
     Route: 048
  55. EMEND [Suspect]
     Active Substance: APREPITANT
     Dosage: UNK
     Route: 048
  56. ENOXAPARIN [Suspect]
     Active Substance: ENOXAPARIN
     Indication: Tardive dyskinesia
     Dosage: 150 MG, QD (1 EVERY 1 DAYS)
     Route: 058
  57. ENOXAPARIN [Suspect]
     Active Substance: ENOXAPARIN
     Dosage: 150 MG, QD (1 EVERY 1 DAYS)
     Route: 058
  58. ENOXAPARIN [Suspect]
     Active Substance: ENOXAPARIN
     Dosage: 150 MG, QD (1 EVERY 1 DAYS)
     Route: 058
  59. ENOXAPARIN [Suspect]
     Active Substance: ENOXAPARIN
     Dosage: UNK
     Route: 058
  60. LEVOFLOXACIN [Suspect]
     Active Substance: LEVOFLOXACIN
     Dosage: 500 MG, QD
     Route: 048
  61. LEVOFLOXACIN [Suspect]
     Active Substance: LEVOFLOXACIN
     Dosage: 500 MG, QD
     Route: 048
  62. LEVOFLOXACIN [Suspect]
     Active Substance: LEVOFLOXACIN
     Dosage: 500 MG, QD
     Route: 048
  63. LEVOFLOXACIN [Suspect]
     Active Substance: LEVOFLOXACIN
     Dosage: 500 MG
     Route: 048
  64. LEVOFLOXACIN [Suspect]
     Active Substance: LEVOFLOXACIN
     Indication: Tardive dyskinesia
     Dosage: 500 ML
     Route: 048
  65. LEVOFLOXACIN [Suspect]
     Active Substance: LEVOFLOXACIN
     Dosage: UNK
     Route: 048
  66. LORAZEPAM [Suspect]
     Active Substance: LORAZEPAM
     Dosage: 0.5 MG, QD (1 EVERY 1 DAYS)
     Route: 048
  67. LORAZEPAM [Suspect]
     Active Substance: LORAZEPAM
     Dosage: 0.5 MG, Q12H, 1 EVERY 12 HOURS
     Route: 048
  68. LORAZEPAM [Suspect]
     Active Substance: LORAZEPAM
     Dosage: 0.5 MG, BID (2 EVERY 1 DAYS)
     Route: 048
  69. LORAZEPAM [Suspect]
     Active Substance: LORAZEPAM
     Dosage: 0.5 MG, BID (2 EVERY 1 DAYS)
     Route: 048
  70. LORAZEPAM [Suspect]
     Active Substance: LORAZEPAM
     Indication: Tardive dyskinesia
     Dosage: 0.5 MG, Q48H, 2 EVERY 1 DAYS (DOSAGE FORM: NOT SPECIFIED)
     Route: 048
  71. LORAZEPAM [Suspect]
     Active Substance: LORAZEPAM
     Dosage: 0.5 MG
     Route: 048
  72. LORAZEPAM [Suspect]
     Active Substance: LORAZEPAM
     Dosage: 0.5 MG, BID (2 EVERY 1 DAYS)
     Route: 048
  73. METOCLOPRAMIDE [Suspect]
     Active Substance: METOCLOPRAMIDE
     Dosage: 10 MG, QD, 1 EVERY 1 DAYS
     Route: 048
  74. METOCLOPRAMIDE [Suspect]
     Active Substance: METOCLOPRAMIDE
     Indication: Tardive dyskinesia
     Dosage: 10 MG, Q6H
     Route: 048
  75. METOCLOPRAMIDE [Suspect]
     Active Substance: METOCLOPRAMIDE
     Dosage: 10 MG, QID, 4 EVERY 1 DAYS
     Route: 048
  76. METOCLOPRAMIDE [Suspect]
     Active Substance: METOCLOPRAMIDE
     Dosage: 10 MG, QID, 4 EVERY 1 DAYS
     Route: 048
  77. NEULASTA [Suspect]
     Active Substance: PEGFILGRASTIM
     Dosage: 6 MG, QD (1 EVERY 1 DAYS, FORMULATION: SOLUTION SUBCUTANEOUS))
     Route: 058
  78. NEULASTA [Suspect]
     Active Substance: PEGFILGRASTIM
     Indication: Supportive care
     Dosage: 6 MG
     Route: 058
  79. NEULASTA [Suspect]
     Active Substance: PEGFILGRASTIM
     Dosage: 6 MG
     Route: 058
  80. NEULASTA [Suspect]
     Active Substance: PEGFILGRASTIM
     Dosage: 6 MG
     Route: 058
  81. NEULASTA [Suspect]
     Active Substance: PEGFILGRASTIM
     Dosage: 6 MG
     Route: 058
  82. NEULASTA [Suspect]
     Active Substance: PEGFILGRASTIM
     Dosage: 6 MG
     Route: 058
  83. NEULASTA [Suspect]
     Active Substance: PEGFILGRASTIM
     Dosage: 6 MG
     Route: 058
  84. NEUPOGEN [Suspect]
     Active Substance: FILGRASTIM
     Dosage: 125 MG, QD (1 EVERY 1 DAYS)
     Route: 048
  85. NEUPOGEN [Suspect]
     Active Substance: FILGRASTIM
     Dosage: 125 UG, QD (1 EVERY 1 DAYS)
     Route: 048
  86. NEUPOGEN [Suspect]
     Active Substance: FILGRASTIM
     Dosage: 480 UG, QD (1 EVERY 1 DAYS)
     Route: 042
  87. NEUPOGEN [Suspect]
     Active Substance: FILGRASTIM
     Indication: Supportive care
     Dosage: 480 UG, QD (1 EVERY 1 DAYS)
     Route: 048
  88. NEUPOGEN [Suspect]
     Active Substance: FILGRASTIM
     Dosage: 480 UG, QD (1 EVERY 1 DAYS)
     Route: 065
  89. NEUPOGEN [Suspect]
     Active Substance: FILGRASTIM
     Dosage: 480 UG, QD (1 EVERY 1 DAYS)
     Route: 065
  90. NEUPOGEN [Suspect]
     Active Substance: FILGRASTIM
     Dosage: 480 UG, QD (1 EVERY 1 DAYS)
     Route: 065
  91. NEUPOGEN [Suspect]
     Active Substance: FILGRASTIM
     Dosage: 480 UG, QD (1 EVERY 1 DAYS)
     Route: 065
  92. ONDANSETRON [Suspect]
     Active Substance: ONDANSETRON
     Indication: Supportive care
     Dosage: 8 MG, QD
     Route: 048
  93. ONDANSETRON [Suspect]
     Active Substance: ONDANSETRON
     Dosage: 8 MG, QD
     Route: 048
  94. ONDANSETRON [Suspect]
     Active Substance: ONDANSETRON
     Dosage: 8.0 MG
     Route: 048
  95. ONDANSETRON [Suspect]
     Active Substance: ONDANSETRON
     Dosage: 8.0 MG
     Route: 048
  96. ONDANSETRON [Suspect]
     Active Substance: ONDANSETRON
     Dosage: 8.0 MG
     Route: 048
  97. ONDANSETRON [Suspect]
     Active Substance: ONDANSETRON
     Dosage: 8.0 MG
     Route: 048
  98. ONDANSETRON [Suspect]
     Active Substance: ONDANSETRON
     Dosage: 8.0 MG
     Route: 048
  99. ONDANSETRON [Suspect]
     Active Substance: ONDANSETRON
     Dosage: 8.0 MG
     Route: 048
  100. ONDANSETRON [Suspect]
     Active Substance: ONDANSETRON
     Dosage: 8.0 MG
     Route: 048
  101. ONDANSETRON [Suspect]
     Active Substance: ONDANSETRON
     Dosage: 8.0 MG
     Route: 048
  102. ONDANSETRON [Suspect]
     Active Substance: ONDANSETRON
     Dosage: 8.0 MG
     Route: 065
  103. ONDANSETRON [Suspect]
     Active Substance: ONDANSETRON
     Dosage: UNK
     Route: 048
  104. ONDANSETRON [Suspect]
     Active Substance: ONDANSETRON
     Dosage: UNK
     Route: 065
  105. PACLITAXEL [Suspect]
     Active Substance: PACLITAXEL
     Dosage: 243 MG, QD (1 EVERY 1 DAYS)
     Route: 042
  106. PACLITAXEL [Suspect]
     Active Substance: PACLITAXEL
     Dosage: 243 MG
     Route: 042
  107. PACLITAXEL [Suspect]
     Active Substance: PACLITAXEL
     Dosage: 303 MG
     Route: 042
  108. PACLITAXEL [Suspect]
     Active Substance: PACLITAXEL
     Dosage: 303 MG
     Route: 042
  109. PACLITAXEL [Suspect]
     Active Substance: PACLITAXEL
     Indication: Supportive care
     Dosage: 303 MG (FORMULATION: LIQUID INTRAVENOUS)
     Route: 042
  110. PACLITAXEL [Suspect]
     Active Substance: PACLITAXEL
     Indication: Breast cancer
     Dosage: 393 MG, QD (1 EVERY 1 DAYS)
     Route: 042
  111. PACLITAXEL [Suspect]
     Active Substance: PACLITAXEL
     Dosage: 393 MG, QD (1 EVERY 1 DAYS)
     Route: 042
  112. PACLITAXEL [Suspect]
     Active Substance: PACLITAXEL
     Dosage: 393 MG
     Route: 042
  113. PACLITAXEL [Suspect]
     Active Substance: PACLITAXEL
     Dosage: 393 MG
     Route: 042
  114. CYCLOPHOSPHAMIDE [Suspect]
     Active Substance: CYCLOPHOSPHAMIDE
     Indication: Tardive dyskinesia
     Dosage: 1360 MG, Q2W (1 EVERY 2WEEKS)
     Route: 042
  115. CYCLOPHOSPHAMIDE [Suspect]
     Active Substance: CYCLOPHOSPHAMIDE
     Dosage: 1360 MG, Q2W (1 EVERY 2WEEKS)
     Route: 042
  116. CYCLOPHOSPHAMIDE [Suspect]
     Active Substance: CYCLOPHOSPHAMIDE
     Dosage: 1360 MG, Q2W (1 EVERY 2WEEKS)
     Route: 042
  117. CYCLOPHOSPHAMIDE [Suspect]
     Active Substance: CYCLOPHOSPHAMIDE
     Dosage: 1360 MG
     Route: 042
  118. CYCLOPHOSPHAMIDE [Suspect]
     Active Substance: CYCLOPHOSPHAMIDE
     Indication: Breast cancer
     Dosage: UNK
     Route: 065
  119. CYCLOPHOSPHAMIDE [Suspect]
     Active Substance: CYCLOPHOSPHAMIDE
     Dosage: UNK
     Route: 065
  120. RANITIDINE HYDROCHLORIDE [Suspect]
     Active Substance: RANITIDINE HYDROCHLORIDE
     Dosage: 150 MG, Q12H
     Route: 048
  121. RANITIDINE HYDROCHLORIDE [Suspect]
     Active Substance: RANITIDINE HYDROCHLORIDE
     Dosage: 150 MG, Q2W
     Route: 048
  122. RANITIDINE HYDROCHLORIDE [Suspect]
     Active Substance: RANITIDINE HYDROCHLORIDE
     Indication: Tardive dyskinesia
     Dosage: 150 MG, BID
     Route: 048
  123. RANITIDINE HYDROCHLORIDE [Suspect]
     Active Substance: RANITIDINE HYDROCHLORIDE
     Dosage: 150 MG, BID
     Route: 048
  124. RANITIDINE HYDROCHLORIDE [Suspect]
     Active Substance: RANITIDINE HYDROCHLORIDE
     Dosage: 150 MG
     Route: 048
  125. RANITIDINE HYDROCHLORIDE [Suspect]
     Active Substance: RANITIDINE HYDROCHLORIDE
     Dosage: 150 MG
     Route: 048
  126. RANITIDINE HYDROCHLORIDE [Suspect]
     Active Substance: RANITIDINE HYDROCHLORIDE
     Dosage: UNK
     Route: 048
  127. TRASTUZUMAB [Suspect]
     Active Substance: TRASTUZUMAB
     Dosage: 626 MG, QD (1 EVERY 1 DAYS)
     Route: 065
  128. TRASTUZUMAB [Suspect]
     Active Substance: TRASTUZUMAB
     Dosage: 626 MG, QD (1 EVERY 1 DAYS)
     Route: 065
  129. TRASTUZUMAB [Suspect]
     Active Substance: TRASTUZUMAB
     Dosage: 626 MG
     Route: 065
  130. TRASTUZUMAB [Suspect]
     Active Substance: TRASTUZUMAB
     Dosage: 626 MG
     Route: 065
  131. TRASTUZUMAB [Suspect]
     Active Substance: TRASTUZUMAB
     Dosage: 626 MG
     Route: 065
  132. TRASTUZUMAB [Suspect]
     Active Substance: TRASTUZUMAB
     Dosage: 626 MG
     Route: 065
  133. TRASTUZUMAB [Suspect]
     Active Substance: TRASTUZUMAB
     Indication: Tardive dyskinesia
     Dosage: 866 MG, QD (1 EVERY 1 DAYS)
     Route: 065
  134. TRASTUZUMAB [Suspect]
     Active Substance: TRASTUZUMAB
     Dosage: 866 MG, QD (1 EVERY 1 DAYS)
     Route: 065
  135. TRASTUZUMAB [Suspect]
     Active Substance: TRASTUZUMAB
     Dosage: 866 MG
     Route: 065
  136. TRASTUZUMAB [Suspect]
     Active Substance: TRASTUZUMAB
     Dosage: UNK
     Route: 048
  137. TRASTUZUMAB [Suspect]
     Active Substance: TRASTUZUMAB
     Dosage: UNK
     Route: 050
  138. TRASTUZUMAB [Suspect]
     Active Substance: TRASTUZUMAB
     Dosage: UNK
     Route: 065
  139. TRASTUZUMAB [Suspect]
     Active Substance: TRASTUZUMAB
     Dosage: UNK
     Route: 065
  140. ZOFRAN [Suspect]
     Active Substance: ONDANSETRON HYDROCHLORIDE
     Dosage: 8 MG, QD (1 EVERY 1 DAYS)
     Route: 048
  141. ZOFRAN [Suspect]
     Active Substance: ONDANSETRON HYDROCHLORIDE
     Dosage: 8 MG, QD (1 EVERY 1 DAYS)
     Route: 048
  142. ZOFRAN [Suspect]
     Active Substance: ONDANSETRON HYDROCHLORIDE
     Indication: Supportive care
     Dosage: 8 MG
     Route: 048
  143. ZOFRAN [Suspect]
     Active Substance: ONDANSETRON HYDROCHLORIDE
     Dosage: 8 MG
     Route: 048
  144. ZOFRAN [Suspect]
     Active Substance: ONDANSETRON HYDROCHLORIDE
     Dosage: UNK
     Route: 065
  145. ZARXIO [Concomitant]
     Active Substance: FILGRASTIM-SNDZ
     Indication: Product used for unknown indication
     Route: 065
  146. ZARXIO [Concomitant]
     Active Substance: FILGRASTIM-SNDZ
     Indication: Product used for unknown indication
     Route: 065
  147. ZIEXTENZO [Concomitant]
     Active Substance: PEGFILGRASTIM-BMEZ
     Indication: Product used for unknown indication
     Route: 065

REACTIONS (12)
  - Atelectasis [Recovered/Resolved]
  - Gastrointestinal disorder [Recovered/Resolved]
  - Computerised tomogram thorax abnormal [Recovered/Resolved]
  - Fatigue [Recovered/Resolved]
  - Dyspnoea [Recovered/Resolved]
  - Nausea [Recovered/Resolved]
  - Cough [Recovered/Resolved]
  - Rash [Recovered/Resolved]
  - Hypoxia [Recovered/Resolved]
  - Pyrexia [Recovered/Resolved]
  - Computerised tomogram thorax [Recovered/Resolved]
  - Off label use [Recovered/Resolved]
